FAERS Safety Report 8723649 (Version 2)
Quarter: 2013Q1

REPORT INFORMATION
  Report Type: Spontaneous
  Country: US (occurrence: US)
  Receive Date: 20120815
  Receipt Date: 20130215
  Transmission Date: 20140127
  Serious: No
  Sender: FDA-Public Use
  Company Number: US-BIOGENIDEC-2012BI029512

PATIENT
  Age: 35 None
  Sex: Female

DRUGS (1)
  1. TYSABRI [Suspect]
     Indication: MULTIPLE SCLEROSIS
     Route: 042
     Dates: start: 20120629

REACTIONS (7)
  - Influenza like illness [Not Recovered/Not Resolved]
  - Hypoaesthesia [Unknown]
  - Cognitive disorder [Recovered/Resolved]
  - Optic atrophy [Not Recovered/Not Resolved]
  - Pain [Not Recovered/Not Resolved]
  - Central nervous system lesion [Not Recovered/Not Resolved]
  - Diabetes mellitus [Not Recovered/Not Resolved]
